FAERS Safety Report 6768718-3 (Version None)
Quarter: 2010Q2

REPORT INFORMATION
  Report Type: 
  Country: None (occurrence: None)
  Receive Date: 20100614
  Receipt Date: 20100526
  Transmission Date: 20101027
  Serious: Yes (Hospitalization)
  Sender: FDA-Public Use
  Company Number: US-GENENTECH-301597

PATIENT
  Age: 6 Year
  Sex: Male
  Weight: 21.1 kg

DRUGS (1)
  1. RITUXIMAB [Suspect]
     Indication: FACTOR VIII DEFICIENCY
     Dosage: 300 MG, 1/WEEK
     Route: 042
     Dates: start: 20100312

REACTIONS (2)
  - MENINGITIS ASEPTIC [None]
  - SINUSITIS [None]
